FAERS Safety Report 18906974 (Version 1)
Quarter: 2021Q1

REPORT INFORMATION
  Report Type: Spontaneous
  Country: US (occurrence: US)
  Receive Date: 20210217
  Receipt Date: 20210217
  Transmission Date: 20210420
  Serious: No
  Sender: FDA-Public Use
  Company Number: US-VIFOR (INTERNATIONAL) INC.-VIT-2021-00774

PATIENT
  Age: 50 Year
  Sex: Male

DRUGS (10)
  1. VELTASSA [Suspect]
     Active Substance: PATIROMER
     Route: 048
  2. SODIUM BICARBONATE. [Concomitant]
     Active Substance: SODIUM BICARBONATE
  3. DEPAKOTE [Concomitant]
     Active Substance: DIVALPROEX SODIUM
  4. SEVELAMER CARBONATE. [Concomitant]
     Active Substance: SEVELAMER CARBONATE
     Dosage: 2 WITH EACH MEAL
  5. CORNSTARCH [Concomitant]
     Dosage: EVERY 3 HOURS
  6. SYNTHROID [Concomitant]
     Active Substance: LEVOTHYROXINE SODIUM
     Indication: THYROID DISORDER
  7. ALLOPURINOL. [Concomitant]
     Active Substance: ALLOPURINOL
  8. VELTASSA [Suspect]
     Active Substance: PATIROMER
     Indication: BLOOD POTASSIUM INCREASED
     Route: 048
     Dates: start: 202011
  9. LASIX [Concomitant]
     Active Substance: FUROSEMIDE
     Dosage: LITTLE BIT OF LASIX
  10. AMLODIPINE [Concomitant]
     Active Substance: AMLODIPINE BESYLATE
     Indication: BLOOD PRESSURE MEASUREMENT

REACTIONS (7)
  - Alopecia [Not Recovered/Not Resolved]
  - Off label use [Unknown]
  - Abdominal distension [Unknown]
  - Blood glucose abnormal [Not Recovered/Not Resolved]
  - Gastrointestinal disorder [Unknown]
  - Condition aggravated [Not Recovered/Not Resolved]
  - Incorrect dose administered [Unknown]

NARRATIVE: CASE EVENT DATE: 202011
